FAERS Safety Report 17860463 (Version 1)
Quarter: 2020Q2

REPORT INFORMATION
  Report Type: Spontaneous
  Country: IN (occurrence: IN)
  Receive Date: 20200604
  Receipt Date: 20200604
  Transmission Date: 20200714
  Serious: Yes (Other)
  Sender: FDA-Public Use
  Company Number: IN-GLENMARK PHARMACEUTICALS-2020GMK048023

PATIENT
  Age: 24 Year
  Sex: Female

DRUGS (1)
  1. LINEZOLID. [Suspect]
     Active Substance: LINEZOLID
     Indication: ENDOCARDITIS
     Dosage: 600 MILLIGRAM, BID
     Route: 042

REACTIONS (4)
  - Skin reaction [Recovered/Resolved]
  - Skin hyperpigmentation [Recovered/Resolved]
  - Rash maculo-papular [Recovered/Resolved]
  - Incorrect route of product administration [Unknown]
